FAERS Safety Report 15732784 (Version 1)
Quarter: 2018Q4

REPORT INFORMATION
  Report Type: Spontaneous
  Country: BR (occurrence: BR)
  Receive Date: 20181217
  Receipt Date: 20181217
  Transmission Date: 20190205
  Serious: Yes (Other)
  Sender: FDA-Public Use
  Company Number: BR-BRISTOL-MYERS SQUIBB COMPANY-BMS-2018-118322

PATIENT
  Age: 63 Year
  Sex: Female

DRUGS (2)
  1. GLIFAGE XR [Suspect]
     Active Substance: METFORMIN HYDROCHLORIDE
     Indication: PRODUCT USED FOR UNKNOWN INDICATION
     Dosage: 4 TAB, 2 IN MORNING 2 IN EVENING
     Route: 065
  2. GLIFAGE XR [Suspect]
     Active Substance: METFORMIN HYDROCHLORIDE
     Indication: DIABETES MELLITUS
     Dosage: UNK UNK, BID
     Route: 065
     Dates: start: 2018

REACTIONS (3)
  - Product residue present [Unknown]
  - Diabetes mellitus inadequate control [Unknown]
  - Drug ineffective [Unknown]

NARRATIVE: CASE EVENT DATE: 201806
